FAERS Safety Report 8133192-1 (Version None)
Quarter: 2012Q1

REPORT INFORMATION
  Report Type: 
  Country: None (occurrence: None)
  Receive Date: 20120213
  Receipt Date: 20120202
  Transmission Date: 20120608
  Serious: No
  Sender: FDA-Public Use
  Company Number: PHEH2011US010794

PATIENT
  Age: 52 Year
  Sex: Female

DRUGS (6)
  1. FISH OIL [Concomitant]
  2. VIGAMOX [Concomitant]
     Dosage: UNK UKN, UNK
  3. AMLODIPINE [Concomitant]
     Dosage: UNK UKN, UNK
  4. TASIGNA [Suspect]
     Indication: CHRONIC MYELOID LEUKAEMIA
     Dosage: 300 MG, BID
     Route: 048
     Dates: start: 20111101
  5. CALCIUM PLUS [Concomitant]
  6. ATENOLOL [Concomitant]

REACTIONS (3)
  - PHOTOSENSITIVITY REACTION [None]
  - ALOPECIA [None]
  - SKIN HYPERPIGMENTATION [None]
